FAERS Safety Report 19862033 (Version 1)
Quarter: 2021Q3

REPORT INFORMATION
  Report Type: Spontaneous
  Country: US (occurrence: US)
  Receive Date: 20210921
  Receipt Date: 20210921
  Transmission Date: 20211014
  Serious: No
  Sender: FDA-Public Use
  Company Number: NVSC2021US212965

PATIENT
  Sex: Female

DRUGS (3)
  1. ASPRIN [Concomitant]
     Active Substance: ASPIRIN
     Indication: PRODUCT USED FOR UNKNOWN INDICATION
     Dosage: UNK
     Route: 065
  2. RECLAST [Suspect]
     Active Substance: ZOLEDRONIC ACID
     Indication: PRODUCT USED FOR UNKNOWN INDICATION
     Dosage: 5 MG, UNKNOWN
     Route: 065
     Dates: start: 2013
  3. RECLAST [Suspect]
     Active Substance: ZOLEDRONIC ACID
     Dosage: 5 MG, UNKNOWN
     Route: 065
     Dates: start: 20210515

REACTIONS (8)
  - Bone pain [Unknown]
  - Spinal pain [Recovered/Resolved]
  - Arthralgia [Unknown]
  - Insomnia [Unknown]
  - Pain in extremity [Unknown]
  - Pain [Recovered/Resolved]
  - Jaw disorder [Unknown]
  - Osteoporosis [Unknown]
